FAERS Safety Report 11839994 (Version 1)
Quarter: 2015Q4

REPORT INFORMATION
  Report Type: Spontaneous
  Country: US (occurrence: US)
  Receive Date: 20151216
  Receipt Date: 20151216
  Transmission Date: 20160305
  Serious: No
  Sender: FDA-Public Use
  Company Number: US-DRREDDYS-USA/USA/15/0048247

PATIENT
  Age: 64 Year
  Sex: Male

DRUGS (1)
  1. OLANZAPINE FILM-COATED TABLET [Suspect]
     Active Substance: OLANZAPINE
     Indication: PRODUCT USED FOR UNKNOWN INDICATION
     Route: 048

REACTIONS (7)
  - Agitation [Recovered/Resolved]
  - Irritability [Recovered/Resolved]
  - Product quality issue [Unknown]
  - Anger [Recovered/Resolved]
  - Drug ineffective [Unknown]
  - Hostility [Recovered/Resolved]
  - Delusion [Recovered/Resolved]
